FAERS Safety Report 19040724 (Version 1)
Quarter: 2021Q1

REPORT INFORMATION
  Report Type: Other
  Country: FR (occurrence: FR)
  Receive Date: 20210323
  Receipt Date: 20210323
  Transmission Date: 20210420
  Serious: Yes (Other)
  Sender: FDA-Public Use
  Company Number: FR-ROCHE-2792035

PATIENT
  Age: 64 Year
  Sex: Male

DRUGS (1)
  1. OMALIZUMAB. [Suspect]
     Active Substance: OMALIZUMAB
     Indication: PEMPHIGOID
     Route: 065

REACTIONS (2)
  - Off label use [Unknown]
  - Acquired haemophilia [Recovered/Resolved]
